FAERS Safety Report 21023766 (Version 1)
Quarter: 2022Q2

REPORT INFORMATION
  Report Type: Spontaneous
  Country: BE (occurrence: BE)
  Receive Date: 20220629
  Receipt Date: 20220629
  Transmission Date: 20220721
  Serious: Yes (Hospitalization)
  Sender: FDA-Public Use
  Company Number: BE-JNJFOC-20220641172

PATIENT
  Age: 73 Year
  Sex: Female

DRUGS (9)
  1. SPRAVATO [Suspect]
     Active Substance: ESKETAMINE
     Indication: Product used for unknown indication
     Dosage: SINCE DECEMBER
  2. ANAFRANIL [Concomitant]
     Active Substance: CLOMIPRAMINE HYDROCHLORIDE
     Dosage: 2 X 75MG
     Route: 065
  3. COVERAM [Concomitant]
     Active Substance: AMLODIPINE\PERINDOPRIL
     Route: 065
  4. DULCOSOFT [MACROGOL] [Concomitant]
     Route: 065
  5. MYSOLINE [Concomitant]
     Active Substance: PRIMIDONE
     Route: 065
  6. SERTRALINE [Concomitant]
     Active Substance: SERTRALINE HYDROCHLORIDE
     Route: 065
  7. LORAZEPAM [Concomitant]
     Active Substance: LORAZEPAM
     Route: 065
  8. TRAZODONE [Concomitant]
     Active Substance: TRAZODONE HYDROCHLORIDE
     Route: 065
  9. ZYPREXA [Concomitant]
     Active Substance: OLANZAPINE
     Dosage: 7 X 5MG
     Route: 065

REACTIONS (2)
  - Interstitial lung disease [Unknown]
  - COVID-19 [Unknown]
